FAERS Safety Report 5481556-7 (Version None)
Quarter: 2007Q4

REPORT INFORMATION
  Report Type: 
  Country: None (occurrence: None)
  Receive Date: 20071005
  Receipt Date: 20071005
  Transmission Date: 20080405
  Serious: Yes (Hospitalization)
  Sender: FDA-Public Use
  Company Number: None

PATIENT
  Sex: Female
  Weight: 121.8 kg

DRUGS (5)
  1. TOPOTECAN [Suspect]
     Dosage: 18 MG
  2. COUMADIN [Concomitant]
  3. MIRALAX [Concomitant]
  4. SENOKOT [Concomitant]
  5. VICODIN [Concomitant]

REACTIONS (4)
  - BLOOD CREATININE ABNORMAL [None]
  - FEMALE GENITAL TRACT FISTULA [None]
  - OBSTRUCTIVE UROPATHY [None]
  - PROTHROMBIN TIME PROLONGED [None]
